FAERS Safety Report 23630352 (Version 2)
Quarter: 2024Q1

REPORT INFORMATION
  Report Type: Spontaneous
  Country: JP (occurrence: JP)
  Receive Date: 20240314
  Receipt Date: 20240323
  Transmission Date: 20240410
  Serious: Yes (Life-Threatening, Other)
  Sender: FDA-Public Use
  Company Number: JP-AMGEN-JPNSP2024025255

PATIENT
  Age: 71 Year
  Sex: Female

DRUGS (7)
  1. BLINCYTO [Suspect]
     Active Substance: BLINATUMOMAB
     Indication: Acute lymphocytic leukaemia
     Dosage: 9 MICROGRAM, DRIP INFUSION, QD
     Route: 042
     Dates: start: 20240129, end: 20240130
  2. BLINCYTO [Suspect]
     Active Substance: BLINATUMOMAB
     Dosage: 9 MICROGRAM, DRIP INFUSION, QD
     Route: 042
     Dates: start: 20240206, end: 2024
  3. BLINCYTO [Suspect]
     Active Substance: BLINATUMOMAB
     Dosage: UNK, DOSE INCREASE
     Route: 042
     Dates: start: 2024, end: 2024
  4. BLINCYTO [Suspect]
     Active Substance: BLINATUMOMAB
     Dosage: UNK, LOW DOSE
     Route: 042
     Dates: start: 2024, end: 2024
  5. DEXAMETHASONE SODIUM PHOSPHATE [Concomitant]
     Active Substance: DEXAMETHASONE PHOSPHATE\DEXAMETHASONE SODIUM PHOSPHATE
     Indication: Anaphylactic reaction
     Dosage: 20 MILLIGRAM
     Dates: start: 20240206
  6. DEXAMETHASONE SODIUM PHOSPHATE [Concomitant]
     Active Substance: DEXAMETHASONE PHOSPHATE\DEXAMETHASONE SODIUM PHOSPHATE
     Dosage: UNK
     Dates: start: 2024
  7. BESPONSA [Concomitant]
     Active Substance: INOTUZUMAB OZOGAMICIN

REACTIONS (4)
  - Anaphylactic reaction [Recovered/Resolved]
  - Cytokine release syndrome [Recovered/Resolved]
  - Disseminated intravascular coagulation [Unknown]
  - Neutrophil count decreased [Not Recovered/Not Resolved]

NARRATIVE: CASE EVENT DATE: 20240101
